FAERS Safety Report 4844781-1 (Version None)
Quarter: 2005Q4

REPORT INFORMATION
  Report Type: 
  Country: None (occurrence: None)
  Receive Date: 20051129
  Receipt Date: 20051114
  Transmission Date: 20060501
  Serious: Yes (Other)
  Sender: FDA-Public Use
  Company Number: 219544

PATIENT

DRUGS (1)
  1. PULMOZYME [Suspect]

REACTIONS (1)
  - HAEMOPTYSIS [None]
